FAERS Safety Report 8442017-6 (Version None)
Quarter: 2012Q2

REPORT INFORMATION
  Report Type: 
  Country: None (occurrence: None)
  Receive Date: 20120615
  Receipt Date: 20120608
  Transmission Date: 20120825
  Serious: Yes (Other)
  Sender: FDA-Public Use
  Company Number: TR-GENZYME-MOZO-1000712

PATIENT

DRUGS (2)
  1. MOZOBIL [Suspect]
     Indication: NEPHROBLASTOMA
  2. MOZOBIL [Suspect]
     Indication: HAEMATOPOIETIC STEM CELL MOBILISATION
     Dosage: 24 MG/KG, UNK
     Route: 058

REACTIONS (2)
  - INSOMNIA [None]
  - HALLUCINATION [None]
